FAERS Safety Report 6836585-5 (Version None)
Quarter: 2010Q3

REPORT INFORMATION
  Report Type: 
  Country: None (occurrence: None)
  Receive Date: 20100713
  Receipt Date: 20100702
  Transmission Date: 20110219
  Serious: Yes (Hospitalization, Other)
  Sender: FDA-Public Use
  Company Number: PHHY2010ES30242

PATIENT
  Age: 78 Year
  Sex: Female

DRUGS (7)
  1. EXJADE [Suspect]
     Indication: MYELODYSPLASTIC SYNDROME
     Dosage: 625 MG, UNK
     Route: 048
     Dates: start: 20081118, end: 20100330
  2. EXJADE [Suspect]
     Indication: IRON OVERLOAD
  3. VIDAZA [Suspect]
     Indication: MYELODYSPLASTIC SYNDROME
     Dosage: 75 MG/M2, UNK
     Route: 058
     Dates: start: 20100316
  4. VIDAZA [Suspect]
     Indication: REFRACTORY CYTOPENIA WITH MULTILINEAGE DYSPLASIA
  5. VIDAZA [Suspect]
     Indication: DYSPLASIA
  6. METFORMIN HCL [Concomitant]
     Dosage: UNK
  7. OMEPRAZOLE [Concomitant]
     Dosage: UNK

REACTIONS (9)
  - CARDIAC FAILURE [None]
  - CREPITATIONS [None]
  - DYSPNOEA [None]
  - HAEMOGLOBIN DECREASED [None]
  - HAEMOLYTIC ANAEMIA [None]
  - JAUNDICE [None]
  - MEAN CELL VOLUME INCREASED [None]
  - NAUSEA [None]
  - OEDEMA PERIPHERAL [None]
